FAERS Safety Report 6894732-3 (Version None)
Quarter: 2010Q3

REPORT INFORMATION
  Report Type: 
  Country: None (occurrence: None)
  Receive Date: 20100802
  Receipt Date: 20100722
  Transmission Date: 20110219
  Serious: Yes (Hospitalization)
  Sender: FDA-Public Use
  Company Number: US-ASTRAZENECA-2010SE34243

PATIENT
  Age: 92 Year
  Sex: Female
  Weight: 57.7 kg

DRUGS (13)
  1. ARIMIDEX [Suspect]
     Indication: BREAST CANCER
     Route: 048
  2. NORVASC [Concomitant]
  3. CALCIUM [Concomitant]
  4. VITAMIN D [Concomitant]
  5. COREG [Concomitant]
  6. MULTI-VITAMIN [Concomitant]
  7. PPI [Concomitant]
  8. DIOVAN [Concomitant]
  9. HYDROCHLOROTHIAZIDE [Concomitant]
  10. GLUCOSAMINE CONDROITON [Concomitant]
  11. TYLENOL [Concomitant]
  12. POTASSIUM [Concomitant]
  13. PRAVASTATIN [Concomitant]

REACTIONS (2)
  - FALL [None]
  - HIP FRACTURE [None]
